FAERS Safety Report 8580746 (Version 2)
Quarter: 2012Q4

REPORT INFORMATION
  Report Type: Report from Study
  Country: JP (occurrence: JP)
  Receive Date: 20120525
  Receipt Date: 20121221
  Transmission Date: 20130627
  Serious: Yes (Other)
  Sender: FDA-Public Use
  Company Number: JP-VERTEX PHARMACEUTICALS INC.-AE-2012-007589

PATIENT
  Age: 72 Year
  Sex: Female

DRUGS (11)
  1. VX-950 (TELAPREVIR) [Suspect]
     Indication: CHRONIC HEPATITIS C
     Dosage: 2250 mg, qd
     Route: 048
     Dates: start: 20120316, end: 20120321
  2. REBETOL [Suspect]
     Indication: CHRONIC HEPATITIS C
     Dosage: 600 mg, qd
     Route: 048
     Dates: start: 20120316, end: 20120406
  3. REBETOL [Suspect]
     Dosage: 400 mg, qd
     Route: 048
     Dates: start: 20120501
  4. PEGINTRON                          /01543001/ [Suspect]
     Indication: CHRONIC HEPATITIS C
     Dosage: 1.5 ?g/kg, qw
     Route: 058
     Dates: start: 20120316
  5. BAYASPIRIN [Concomitant]
     Dosage: 100 mg, qd
     Route: 048
  6. MICARDIS [Concomitant]
     Dosage: 20 mg, qd
     Route: 048
  7. NATRIX [Concomitant]
     Dosage: 0.5 mg, qd
     Route: 048
  8. ZETIA [Concomitant]
     Dosage: 10 mg, qd
     Route: 048
  9. WARFARIN [Concomitant]
     Dosage: 2.5 mg, qd
     Route: 048
  10. ARTIST [Concomitant]
     Dosage: 2.5 mg, qd
     Route: 048
  11. MEVALOTIN [Concomitant]
     Dosage: 5 mg, qd
     Route: 048

REACTIONS (3)
  - Renal disorder [Recovered/Resolved]
  - Nausea [Recovered/Resolved]
  - Haemoglobin decreased [Not Recovered/Not Resolved]
